FAERS Safety Report 8014873-7 (Version None)
Quarter: 2011Q4

REPORT INFORMATION
  Report Type: 
  Country: None (occurrence: None)
  Receive Date: 20111229
  Receipt Date: 20111227
  Transmission Date: 20120403
  Serious: Yes (Other)
  Sender: FDA-Public Use
  Company Number: US-PFIZER INC-2011313843

PATIENT
  Sex: Male
  Weight: 79.365 kg

DRUGS (3)
  1. CHANTIX [Suspect]
     Indication: SMOKING CESSATION THERAPY
     Dosage: 0.5 MG, DAILY
     Route: 048
     Dates: start: 20111101, end: 20110101
  2. CHANTIX [Suspect]
     Dosage: 1 MG, 2X/DAY
     Route: 048
     Dates: start: 20110101, end: 20111201
  3. KLONOPIN [Concomitant]
     Dosage: UNK, 2X/DAY

REACTIONS (4)
  - MIGRAINE [None]
  - FEELING ABNORMAL [None]
  - CHEST PAIN [None]
  - ANGER [None]
